FAERS Safety Report 8990227 (Version 2)
Quarter: 2013Q1

REPORT INFORMATION
  Report Type: Report from Study
  Country: US (occurrence: US)
  Receive Date: 20121228
  Receipt Date: 20130226
  Transmission Date: 20140127
  Serious: Yes (Hospitalization, Other)
  Sender: FDA-Public Use
  Company Number: US-ABBOTT-12P-163-1024581-00

PATIENT
  Age: 32 Year
  Sex: Female
  Weight: 52.21 kg

DRUGS (20)
  1. HUMIRA [Suspect]
     Indication: CROHN^S DISEASE
  2. SIMVASTATIN [Suspect]
  3. ALBUTEROL [Concomitant]
     Indication: PRODUCT USED FOR UNKNOWN INDICATION
     Dosage: UNKNOWN
  4. NORCO [Concomitant]
     Indication: PRODUCT USED FOR UNKNOWN INDICATION
     Dosage: 10/325 1 Q4-6HRS, USUALLY 1 BID
  5. AZATHIOPRINE [Concomitant]
     Indication: PRODUCT USED FOR UNKNOWN INDICATION
  6. BENTYL [Concomitant]
     Indication: PRODUCT USED FOR UNKNOWN INDICATION
     Route: 048
  7. ALPRAZOLAM [Concomitant]
     Indication: PRODUCT USED FOR UNKNOWN INDICATION
     Route: 048
  8. PREDNISONE [Concomitant]
     Indication: PRODUCT USED FOR UNKNOWN INDICATION
  9. DRISDOL [Concomitant]
     Indication: PRODUCT USED FOR UNKNOWN INDICATION
  10. ACTONEL [Concomitant]
     Indication: PRODUCT USED FOR UNKNOWN INDICATION
     Route: 048
  11. PENTASA [Concomitant]
     Indication: PRODUCT USED FOR UNKNOWN INDICATION
  12. MAXALT [Concomitant]
     Indication: PRODUCT USED FOR UNKNOWN INDICATION
     Route: 048
  13. DUONEB [Concomitant]
     Indication: PRODUCT USED FOR UNKNOWN INDICATION
  14. PRAVASTATIN [Concomitant]
     Indication: PRODUCT USED FOR UNKNOWN INDICATION
  15. INSULIN [Concomitant]
     Indication: STEROID THERAPY
     Dosage: SLIDING SCALE
  16. MUCINEX [Concomitant]
     Indication: PRODUCT USED FOR UNKNOWN INDICATION
  17. SINGULAIR [Concomitant]
     Indication: PRODUCT USED FOR UNKNOWN INDICATION
     Route: 048
  18. LORAZEPAM [Concomitant]
     Indication: NAUSEA
     Dosage: 0.5 MG BID PRN
  19. BENADRYL [Concomitant]
     Indication: PRODUCT USED FOR UNKNOWN INDICATION
     Dosage: 100 MG Q6HRS PRN
  20. DEXILANT [Concomitant]
     Indication: PRODUCT USED FOR UNKNOWN INDICATION
     Route: 048

REACTIONS (27)
  - Motion sickness [Recovered/Resolved]
  - Ear pain [Unknown]
  - Influenza like illness [Recovered/Resolved]
  - Vomiting [Recovered/Resolved]
  - Vomiting [Recovered/Resolved]
  - Dehydration [Recovered/Resolved]
  - Somnolence [Recovered/Resolved]
  - Viral upper respiratory tract infection [Unknown]
  - Dysphagia [Recovered/Resolved]
  - Hypersensitivity [Unknown]
  - Stress [Unknown]
  - Nausea [Unknown]
  - Vomiting [Unknown]
  - Diarrhoea [Unknown]
  - Injection site reaction [Recovering/Resolving]
  - Sinusitis [Unknown]
  - Acidosis [Unknown]
  - Liver function test abnormal [Unknown]
  - Weight decreased [Unknown]
  - Migraine [Not Recovered/Not Resolved]
  - Dehydration [Recovered/Resolved]
  - Sunburn [Recovered/Resolved]
  - Injection site reaction [Unknown]
  - Asthma [Unknown]
  - Irritable bowel syndrome [Unknown]
  - Increased tendency to bruise [Recovered/Resolved]
  - Bronchitis [Unknown]
